FAERS Safety Report 24223489 (Version 1)
Quarter: 2024Q3

REPORT INFORMATION
  Report Type: Spontaneous
  Country: US (occurrence: US)
  Receive Date: 20240819
  Receipt Date: 20240819
  Transmission Date: 20241016
  Serious: No
  Sender: VERTEX
  Company Number: US-VERTEX PHARMACEUTICALS-2024-013136

PATIENT
  Age: 68 Year

DRUGS (1)
  1. TRIKAFTA [Suspect]
     Active Substance: ELEXACAFTOR\IVACAFTOR\TEZACAFTOR
     Indication: Cystic fibrosis
     Dosage: REDUCED DOSE - 1/2 OF TARGET DOSE
     Route: 048

REACTIONS (2)
  - Photosensitivity reaction [Not Recovered/Not Resolved]
  - Hyperacusis [Not Recovered/Not Resolved]
